FAERS Safety Report 18623271 (Version 1)
Quarter: 2020Q4

REPORT INFORMATION
  Report Type: Spontaneous
  Country: US (occurrence: US)
  Receive Date: 20201216
  Receipt Date: 20201216
  Transmission Date: 20210114
  Serious: Yes (Hospitalization)
  Sender: FDA-Public Use
  Company Number: None

PATIENT
  Sex: Female
  Weight: 133.9 kg

DRUGS (6)
  1. ONCASPAR [Suspect]
     Active Substance: PEGASPARGASE
     Dates: end: 20201123
  2. VINCRISTINE SULFATE. [Suspect]
     Active Substance: VINCRISTINE SULFATE
     Dates: end: 20201204
  3. DAUNORUBICIN [Suspect]
     Active Substance: DAUNORUBICIN
     Dates: end: 20201204
  4. METHOTREXATE. [Suspect]
     Active Substance: METHOTREXATE
     Dates: end: 20201127
  5. CYTARABINE. [Suspect]
     Active Substance: CYTARABINE
     Dates: end: 20201118
  6. PREDNISOLONE. [Suspect]
     Active Substance: PREDNISOLONE
     Dates: end: 20201210

REACTIONS (4)
  - Abdominal pain [None]
  - Fatigue [None]
  - Postoperative wound complication [None]
  - Jaundice [None]

NARRATIVE: CASE EVENT DATE: 20201208
